FAERS Safety Report 8507143-1 (Version None)
Quarter: 2012Q3

REPORT INFORMATION
  Report Type: 
  Country: None (occurrence: None)
  Receive Date: 20120703
  Receipt Date: 20120619
  Transmission Date: 20120928
  Serious: Yes (Other)
  Sender: FDA-Public Use
  Company Number: DSA_58059_2012

PATIENT

DRUGS (4)
  1. LEUCOVORIN CALCIUM [Suspect]
     Indication: COLORECTAL CANCER METASTATIC
     Dosage: (200 MG/M2)
  2. BEVACIZUMAB (BEVACIZUMAB) [Suspect]
     Indication: COLORECTAL CANCER METASTATIC
     Dosage: (5 MG/KG, EVERY OTHER WEEK)
  3. FLUOROURACIL [Suspect]
     Indication: COLORECTAL CANCER METASTATIC
     Dosage: (2000 MG/M2)
  4. IRINOTECAN HCL [Suspect]
     Indication: COLORECTAL CANCER METASTATIC
     Dosage: (100 MG/M2)

REACTIONS (5)
  - NEOPLASM PROGRESSION [None]
  - TREATMENT FAILURE [None]
  - HAEMATOTOXICITY [None]
  - NEUTROPENIA [None]
  - COLORECTAL CANCER METASTATIC [None]
